FAERS Safety Report 17369809 (Version 15)
Quarter: 2021Q2

REPORT INFORMATION
  Report Type: Spontaneous
  Country: US (occurrence: US)
  Receive Date: 20200205
  Receipt Date: 20210618
  Transmission Date: 20210716
  Serious: No
  Sender: FDA-Public Use
  Company Number: US-DSJP-DSU-2020-103836

PATIENT
  Sex: Female

DRUGS (5)
  1. TURALIO [Suspect]
     Active Substance: PEXIDARTINIB HYDROCHLORIDE
     Dosage: 200 MG, BID
     Route: 048
  2. TURALIO [Suspect]
     Active Substance: PEXIDARTINIB HYDROCHLORIDE
     Dosage: 200 MG, BID
     Route: 048
  3. TURALIO [Suspect]
     Active Substance: PEXIDARTINIB HYDROCHLORIDE
     Dosage: 400 MG, BID
     Route: 048
     Dates: start: 20200124
  4. TURALIO [Suspect]
     Active Substance: PEXIDARTINIB HYDROCHLORIDE
     Indication: SYNOVITIS
     Dosage: 200 MG, BID
     Route: 048
     Dates: start: 20200124
  5. TURALIO [Suspect]
     Active Substance: PEXIDARTINIB HYDROCHLORIDE
     Dosage: 200 MG, BID
     Route: 048

REACTIONS (23)
  - Product dose omission issue [Recovered/Resolved]
  - Hyperthyroidism [Unknown]
  - Hypersensitivity [Unknown]
  - Photosensitivity reaction [Unknown]
  - Menstruation delayed [Unknown]
  - Pain [Unknown]
  - White blood cell count decreased [Recovered/Resolved]
  - Oligomenorrhoea [Unknown]
  - Alopecia [Unknown]
  - Constipation [Recovered/Resolved]
  - Accidental exposure to product [Unknown]
  - Sinusitis [Unknown]
  - Erythema [Unknown]
  - Pollakiuria [Recovered/Resolved]
  - Pruritus [Not Recovered/Not Resolved]
  - Nasal congestion [Unknown]
  - Inflammation [Unknown]
  - Fatigue [Recovered/Resolved]
  - Dehydration [Not Recovered/Not Resolved]
  - Diarrhoea [Not Recovered/Not Resolved]
  - Illness [Recovered/Resolved]
  - Insomnia [Not Recovered/Not Resolved]
  - Pain in extremity [Recovered/Resolved]

NARRATIVE: CASE EVENT DATE: 2020
